FAERS Safety Report 8510975 (Version 4)
Quarter: 2014Q2

REPORT INFORMATION
  Report Type: Report from Study
  Country: BR (occurrence: BR)
  Receive Date: 20120413
  Receipt Date: 20140611
  Transmission Date: 20141212
  Serious: Yes (Hospitalization, Other)
  Sender: FDA-Public Use
  Company Number: BR-ROCHE-1057155

PATIENT
  Sex: Female
  Weight: 59 kg

DRUGS (4)
  1. ACTEMRA [Suspect]
     Indication: RHEUMATOID ARTHRITIS
     Dosage: INFUSION WAS RECEIVED ON 20/FEB/2014.
     Route: 042
     Dates: start: 20110516
  2. ACTEMRA [Suspect]
     Route: 065
     Dates: start: 20140220
  3. HUMIRA [Concomitant]
     Indication: RHEUMATOID ARTHRITIS
  4. METHOTREXATE [Concomitant]
     Indication: RHEUMATOID ARTHRITIS

REACTIONS (5)
  - Arthropathy [Unknown]
  - Herpes zoster [Unknown]
  - Genital disorder female [Unknown]
  - Incision site inflammation [Unknown]
  - Drug effect decreased [Unknown]
